FAERS Safety Report 11815880 (Version 5)
Quarter: 2016Q1

REPORT INFORMATION
  Report Type: Spontaneous
  Country: BR (occurrence: BR)
  Receive Date: 20151209
  Receipt Date: 20160314
  Transmission Date: 20160525
  Serious: Yes (Other)
  Sender: FDA-Public Use
  Company Number: BR-PFIZER INC-2015371531

PATIENT
  Age: 93 Year
  Sex: Female
  Weight: 49 kg

DRUGS (3)
  1. FRONTAL [Suspect]
     Active Substance: ALPRAZOLAM
     Indication: ANXIETY
     Dosage: 2 TABLETS OF 0.5 MG DAILY
     Route: 048
  2. FRONTAL [Suspect]
     Active Substance: ALPRAZOLAM
     Indication: SLEEP DISORDER
     Dosage: 2.5 MG, 1X/DAY
     Route: 048
     Dates: start: 2014, end: 201410
  3. FRONTAL SL [Suspect]
     Active Substance: ACETAMINOPHEN\PHENYLPROPANOLAMINE HYDROCHLORIDE\PHENYLTOLOXAMINE
     Dosage: 2 TABLETS OF 0.5 MG AT NIGHT
     Route: 060
     Dates: start: 201410, end: 201412

REACTIONS (5)
  - Hallucination [Recovered/Resolved]
  - Intentional product misuse [Recovered/Resolved]
  - Fall [Recovered/Resolved]
  - Skin injury [Recovered/Resolved]
  - Disorientation [Recovered/Resolved]

NARRATIVE: CASE EVENT DATE: 201412
